FAERS Safety Report 15395337 (Version 5)
Quarter: 2019Q4

REPORT INFORMATION
  Report Type: Spontaneous
  Country: US (occurrence: US)
  Receive Date: 20180918
  Receipt Date: 20191127
  Transmission Date: 20200122
  Serious: No
  Sender: FDA-Public Use
  Company Number: US-PFIZER INC-2018375249

PATIENT
  Age: 51 Year
  Sex: Female

DRUGS (4)
  1. IBRANCE [Suspect]
     Active Substance: PALBOCICLIB
     Dosage: 75 MG, CYCLIC (1 CAPSULE, DAILY ON DAYS 1 THROUGH 21 OF A 28-DAY TREATMENT CYCLE)
     Route: 048
  2. IBRANCE [Suspect]
     Active Substance: PALBOCICLIB
     Dosage: 75 MG, CYCLIC (TAKE 1 CAPSULE BY MOUTH DAILY ON DAYS 1 THROUGH 21 OF A 28-DAY TREATMENT CYCLE)
     Route: 048
     Dates: start: 201808
  3. IBRANCE [Suspect]
     Active Substance: PALBOCICLIB
     Indication: BREAST CANCER FEMALE
     Dosage: 125 MG, CYCLIC (1 CAPSULE DAILY, WITH FOOD FOR 21 DAYS OF 28 DAY)
     Route: 048
     Dates: start: 201808
  4. IBRANCE [Suspect]
     Active Substance: PALBOCICLIB
     Dosage: 100 MG, CYCLIC (1 CAPSULE, ONCE DAILY ON DAYS 1 THROUGH 21 OF A 28 DAY)
     Route: 048

REACTIONS (6)
  - White blood cell count decreased [Unknown]
  - Rhinorrhoea [Unknown]
  - Eye disorder [Unknown]
  - Fatigue [Unknown]
  - Myalgia [Unknown]
  - Arthralgia [Unknown]

NARRATIVE: CASE EVENT DATE: 2018
